FAERS Safety Report 7414075-9 (Version None)
Quarter: 2011Q2

REPORT INFORMATION
  Report Type: 
  Country: None (occurrence: None)
  Receive Date: 20110414
  Receipt Date: 20110411
  Transmission Date: 20111010
  Serious: No
  Sender: FDA-Public Use
  Company Number: US-PFIZER INC-2011079611

PATIENT
  Sex: Female
  Weight: 86 kg

DRUGS (2)
  1. ARTHROTEC [Suspect]
     Indication: ARTHRITIS
     Dosage: 1 DF (50 MG/200 MCG), 1X/DAY
     Route: 048
     Dates: start: 20101001
  2. ZYRTEC [Concomitant]
     Dosage: UNK

REACTIONS (4)
  - ABDOMINAL DISCOMFORT [None]
  - NAUSEA [None]
  - DRUG INEFFECTIVE [None]
  - ARTHRITIS [None]
